APPROVED DRUG PRODUCT: VENCLEXTA
Active Ingredient: VENETOCLAX
Strength: 50MG
Dosage Form/Route: TABLET;ORAL
Application: N208573 | Product #002
Applicant: ABBVIE INC
Approved: Apr 11, 2016 | RLD: Yes | RS: No | Type: RX

PATENTS:
Patent 9539251 | Expires: Sep 6, 2033
Patent 9174982 | Expires: May 26, 2030
Patent 9174982 | Expires: May 26, 2030
Patent 9174982 | Expires: May 26, 2030
Patent 9174982 | Expires: May 26, 2030
Patent 11413282 | Expires: Sep 6, 2033
Patent 11590128 | Expires: Sep 6, 2033
Patent 10993942 | Expires: Sep 6, 2033
Patent 11110087 | Expires: Sep 6, 2033
Patent 11110087 | Expires: Sep 6, 2033
Patent 10730873 | Expires: Nov 21, 2031
Patent 8546399 | Expires: Jun 27, 2031
Patent 8722657 | Expires: Jan 29, 2032
Patent 11369599 | Expires: May 23, 2032

EXCLUSIVITY:
Code: ODE-239 | Date: May 15, 2026